FAERS Safety Report 25618738 (Version 1)
Quarter: 2025Q3

REPORT INFORMATION
  Report Type: Spontaneous
  Country: AU (occurrence: AU)
  Receive Date: 20250729
  Receipt Date: 20250729
  Transmission Date: 20251021
  Serious: Yes (Hospitalization, Other)
  Sender: MYLAN
  Company Number: AU-MYLANLABS-2025M1063523

PATIENT
  Age: 39 Year
  Sex: Female

DRUGS (36)
  1. ELETRIPTAN [Suspect]
     Active Substance: ELETRIPTAN
     Indication: Product used for unknown indication
     Dosage: 20 MILLIGRAM, BID (AT 5PM PLUS 9PM)
  2. ELETRIPTAN [Suspect]
     Active Substance: ELETRIPTAN
     Dosage: 20 MILLIGRAM, BID (AT 5PM PLUS 9PM)
     Route: 065
  3. ELETRIPTAN [Suspect]
     Active Substance: ELETRIPTAN
     Dosage: 20 MILLIGRAM, BID (AT 5PM PLUS 9PM)
     Route: 065
  4. ELETRIPTAN [Suspect]
     Active Substance: ELETRIPTAN
     Dosage: 20 MILLIGRAM, BID (AT 5PM PLUS 9PM)
  5. ONDANSETRON [Suspect]
     Active Substance: ONDANSETRON
     Indication: Product used for unknown indication
  6. ONDANSETRON [Suspect]
     Active Substance: ONDANSETRON
     Route: 030
  7. ONDANSETRON [Suspect]
     Active Substance: ONDANSETRON
     Route: 030
  8. ONDANSETRON [Suspect]
     Active Substance: ONDANSETRON
  9. PROCHLORPERAZINE DIMETHANESULFONATE [Suspect]
     Active Substance: PROCHLORPERAZINE DIMETHANESULFONATE
     Indication: Product used for unknown indication
  10. PROCHLORPERAZINE DIMETHANESULFONATE [Suspect]
     Active Substance: PROCHLORPERAZINE DIMETHANESULFONATE
     Route: 065
  11. PROCHLORPERAZINE DIMETHANESULFONATE [Suspect]
     Active Substance: PROCHLORPERAZINE DIMETHANESULFONATE
     Route: 065
  12. PROCHLORPERAZINE DIMETHANESULFONATE [Suspect]
     Active Substance: PROCHLORPERAZINE DIMETHANESULFONATE
  13. PROCHLORPERAZINE [Suspect]
     Active Substance: PROCHLORPERAZINE
     Indication: Product used for unknown indication
  14. PROCHLORPERAZINE [Suspect]
     Active Substance: PROCHLORPERAZINE
     Route: 065
  15. PROCHLORPERAZINE [Suspect]
     Active Substance: PROCHLORPERAZINE
     Route: 065
  16. PROCHLORPERAZINE [Suspect]
     Active Substance: PROCHLORPERAZINE
  17. CARBIMAZOLE [Suspect]
     Active Substance: CARBIMAZOLE
     Indication: Product used for unknown indication
     Dosage: 5 MILLIGRAM, PM (AT 8 PM)
  18. CARBIMAZOLE [Suspect]
     Active Substance: CARBIMAZOLE
     Dosage: 5 MILLIGRAM, PM (AT 8 PM)
     Route: 065
  19. CARBIMAZOLE [Suspect]
     Active Substance: CARBIMAZOLE
     Dosage: 5 MILLIGRAM, PM (AT 8 PM)
     Route: 065
  20. CARBIMAZOLE [Suspect]
     Active Substance: CARBIMAZOLE
     Dosage: 5 MILLIGRAM, PM (AT 8 PM)
  21. PROCHLORPERAZINE [Suspect]
     Active Substance: PROCHLORPERAZINE
     Indication: Product used for unknown indication
     Dosage: 5 MILLIGRAM, PM
  22. PROCHLORPERAZINE [Suspect]
     Active Substance: PROCHLORPERAZINE
     Dosage: 5 MILLIGRAM, PM
  23. PROCHLORPERAZINE [Suspect]
     Active Substance: PROCHLORPERAZINE
     Dosage: 5 MILLIGRAM, PM
     Route: 065
  24. PROCHLORPERAZINE [Suspect]
     Active Substance: PROCHLORPERAZINE
     Dosage: 5 MILLIGRAM, PM
     Route: 065
  25. PROCHLORPERAZINE [Suspect]
     Active Substance: PROCHLORPERAZINE
     Dosage: 12.5 MILLIGRAM, AM
  26. PROCHLORPERAZINE [Suspect]
     Active Substance: PROCHLORPERAZINE
     Dosage: 12.5 MILLIGRAM, AM
  27. PROCHLORPERAZINE [Suspect]
     Active Substance: PROCHLORPERAZINE
     Dosage: 12.5 MILLIGRAM, AM
     Route: 030
  28. PROCHLORPERAZINE [Suspect]
     Active Substance: PROCHLORPERAZINE
     Dosage: 12.5 MILLIGRAM, AM
     Route: 030
  29. AMITRIPTYLINE [Suspect]
     Active Substance: AMITRIPTYLINE
     Indication: Product used for unknown indication
  30. AMITRIPTYLINE [Suspect]
     Active Substance: AMITRIPTYLINE
     Route: 065
  31. AMITRIPTYLINE [Suspect]
     Active Substance: AMITRIPTYLINE
     Route: 065
  32. AMITRIPTYLINE [Suspect]
     Active Substance: AMITRIPTYLINE
  33. Ethinylestradiol and cyproterone acetate [Concomitant]
  34. Ethinylestradiol and cyproterone acetate [Concomitant]
     Route: 065
  35. Ethinylestradiol and cyproterone acetate [Concomitant]
     Route: 065
  36. Ethinylestradiol and cyproterone acetate [Concomitant]

REACTIONS (9)
  - Agitation [Unknown]
  - Hyperreflexia [Unknown]
  - Migraine [Recovering/Resolving]
  - Mydriasis [Unknown]
  - Sinus tachycardia [Unknown]
  - Urinary retention [Unknown]
  - Vertigo [Unknown]
  - Hyperhidrosis [Unknown]
  - Anticholinergic syndrome [Unknown]

NARRATIVE: CASE EVENT DATE: 20210304
